FAERS Safety Report 15425531 (Version 4)
Quarter: 2019Q2

REPORT INFORMATION
  Report Type: Report from Study
  Country: JP (occurrence: JP)
  Receive Date: 20180925
  Receipt Date: 20190619
  Transmission Date: 20190711
  Serious: Yes (Death, Life-Threatening, Other)
  Sender: FDA-Public Use
  Company Number: JP-009507513-1807JPN001779J

PATIENT
  Age: 68 Year
  Sex: Male
  Weight: 66 kg

DRUGS (9)
  1. VICCLOX [Concomitant]
     Active Substance: ACYCLOVIR SODIUM
     Indication: PROPHYLAXIS
     Dosage: 1000 MILLIGRAM, 5 TIMES PER DAY
     Route: 048
     Dates: end: 20180708
  2. PREVYMIS [Suspect]
     Active Substance: LETERMOVIR
     Indication: ANTIVIRAL PROPHYLAXIS
     Dosage: 480 MILLIGRAM, QD
     Route: 041
     Dates: start: 20180705, end: 20180721
  3. PROGRAF [Suspect]
     Active Substance: TACROLIMUS\TACROLIMUS ANHYDROUS
     Indication: PROPHYLAXIS
     Dosage: UNK
     Route: 051
     Dates: start: 20180621, end: 20180722
  4. AMBISOME [Suspect]
     Active Substance: AMPHOTERICIN B
     Indication: SEPSIS
     Dosage: 200 MG, QD
     Route: 051
     Dates: start: 20180707, end: 20180814
  5. FENTANYL. [Concomitant]
     Active Substance: FENTANYL
     Indication: MYELOPROLIFERATIVE NEOPLASM
     Dosage: 0.2-0.6 MG
     Route: 051
     Dates: start: 20180630, end: 20180709
  6. PREVYMIS [Suspect]
     Active Substance: LETERMOVIR
     Dosage: 240 MILLIGRAM, QD
     Route: 041
     Dates: start: 20180722, end: 20180813
  7. TEICOPLANIN [Suspect]
     Active Substance: TEICOPLANIN
     Indication: SEPSIS
     Dosage: 600 MG, QD
     Route: 051
     Dates: start: 20180701, end: 20180810
  8. TACROLIMUS HYDRATE [Concomitant]
     Active Substance: TACROLIMUS
     Indication: PROPHYLAXIS
     Dosage: 0.1-1.3 MG
     Route: 051
     Dates: end: 20180722
  9. PREVYMIS [Suspect]
     Active Substance: LETERMOVIR
     Indication: ANTIVIRAL PROPHYLAXIS
     Dosage: 480 MILLIGRAM, QD
     Route: 048
     Dates: start: 20180622, end: 20180704

REACTIONS (6)
  - Sepsis [Fatal]
  - Diarrhoea [Recovered/Resolved]
  - Fungal infection [Fatal]
  - Renal impairment [Recovered/Resolved]
  - Hepatic failure [Fatal]
  - Incorrect dose administered [Unknown]

NARRATIVE: CASE EVENT DATE: 20180623
